FAERS Safety Report 14695320 (Version 2)
Quarter: 2019Q4

REPORT INFORMATION
  Report Type: Spontaneous
  Country: US (occurrence: US)
  Receive Date: 20180329
  Receipt Date: 20191018
  Transmission Date: 20200122
  Serious: Yes (Other)
  Sender: FDA-Public Use
  Company Number: US-PFIZER INC-2018125931

PATIENT
  Age: 57 Year
  Sex: Male

DRUGS (18)
  1. VIAGRA [Suspect]
     Active Substance: SILDENAFIL CITRATE
     Indication: ERECTILE DYSFUNCTION
     Dosage: UNK
     Route: 048
     Dates: start: 200203, end: 200903
  2. CIALIS [Suspect]
     Active Substance: TADALAFIL
     Dosage: 5 MG, 3 TIMES PER WEEK
     Route: 048
     Dates: start: 20090716, end: 20161031
  3. METRONIDAZOLE. [Concomitant]
     Active Substance: METRONIDAZOLE
     Indication: INFECTION
     Dosage: UNK
     Dates: start: 20131206, end: 20140626
  4. OMEPRAZOLE. [Concomitant]
     Active Substance: OMEPRAZOLE
     Indication: GASTROOESOPHAGEAL REFLUX DISEASE
     Dosage: UNK
     Dates: start: 20050727, end: 20071220
  5. TIMOLOL. [Concomitant]
     Active Substance: TIMOLOL
     Indication: GLAUCOMA
     Dosage: UNK
     Dates: start: 20070511
  6. PROAIR INHALER [Concomitant]
     Active Substance: ALBUTEROL SULFATE
     Indication: MULTIPLE ALLERGIES
     Dosage: UNK
     Dates: start: 20140507
  7. ZIOPTAN [Concomitant]
     Active Substance: TAFLUPROST
     Indication: GLAUCOMA
     Dosage: UNK
     Dates: start: 20140220
  8. TIMOPTIC [Concomitant]
     Active Substance: TIMOLOL MALEATE
     Indication: GLAUCOMA
     Dosage: UNK
     Dates: start: 20140120, end: 20140522
  9. BENAZEPRIL [Concomitant]
     Active Substance: BENAZEPRIL HYDROCHLORIDE
     Indication: HYPERTENSION
     Dosage: UNK
     Dates: start: 20060122
  10. AZITHROMYCIN ANHYDROUS. [Concomitant]
     Active Substance: AZITHROMYCIN ANHYDROUS
     Indication: ANTIBIOTIC THERAPY
     Dosage: UNK
     Dates: start: 20150507, end: 20150622
  11. ZYRTEC [Concomitant]
     Active Substance: CETIRIZINE HYDROCHLORIDE
     Indication: MULTIPLE ALLERGIES
     Dosage: UNK
     Dates: start: 20160201
  12. VIAGRA [Suspect]
     Active Substance: SILDENAFIL CITRATE
     Dosage: 100 MG, 3 TIMES PER WEEK
     Route: 048
     Dates: start: 20090916, end: 20091016
  13. CIALIS [Suspect]
     Active Substance: TADALAFIL
     Dosage: 20 MG, 3 TIMES PER WEEK
     Route: 048
     Dates: start: 20170518, end: 20171111
  14. LATANOPROST. [Concomitant]
     Active Substance: LATANOPROST
     Indication: GLAUCOMA
     Dosage: UNK
     Dates: start: 20101116, end: 20150626
  15. VIAGRA [Suspect]
     Active Substance: SILDENAFIL CITRATE
     Dosage: 100 MG, 3 TIMES PER WEEK
     Route: 048
     Dates: start: 20020308, end: 20100310
  16. CIALIS [Suspect]
     Active Substance: TADALAFIL
     Indication: ERECTILE DYSFUNCTION
     Dosage: UNK
     Route: 048
     Dates: start: 200907, end: 201609
  17. ACAMPROSATE CALCIUM. [Concomitant]
     Active Substance: ACAMPROSATE CALCIUM
     Indication: ALCOHOLISM
     Dosage: UNK
     Dates: start: 20140408, end: 20150226
  18. VITAMIN D [Concomitant]
     Active Substance: VITAMIN D NOS
     Indication: VITAMIN SUPPLEMENTATION
     Dosage: UNK
     Dates: start: 20120516, end: 20140701

REACTIONS (3)
  - Malignant melanoma in situ [Unknown]
  - Anxiety [Unknown]
  - Malignant melanoma [Unknown]

NARRATIVE: CASE EVENT DATE: 20100527
